FAERS Safety Report 9638597 (Version 1)
Quarter: 2013Q4

REPORT INFORMATION
  Report Type: Spontaneous
  Country: US (occurrence: US)
  Receive Date: 20131022
  Receipt Date: 20131022
  Transmission Date: 20140711
  Serious: No
  Sender: FDA-Public Use
  Company Number: US-BRISTOL-MYERS SQUIBB COMPANY-19474139

PATIENT
  Age: 70 Year
  Sex: Male
  Weight: 91.61 kg

DRUGS (8)
  1. ELIQUIS [Suspect]
     Indication: ATRIAL FIBRILLATION
  2. PRADAXA [Suspect]
     Dates: end: 201309
  3. METOPROLOL [Concomitant]
  4. LOSARTAN POTASSIUM + HCTZ [Concomitant]
     Dosage: 1DF: 100-12.5 MG
  5. SIMVASTATIN [Concomitant]
     Dosage: AT NIGHT
  6. LEVOTHYROXINE [Concomitant]
  7. VITAMIN D [Concomitant]
     Dosage: VITAMIN D SUPPLEMENT
  8. COENZYME-Q10 [Concomitant]

REACTIONS (2)
  - Abdominal discomfort [Unknown]
  - Restless legs syndrome [Unknown]
